FAERS Safety Report 9159923 (Version 1)
Quarter: 2013Q1

REPORT INFORMATION
  Report Type: Spontaneous
  Country: US (occurrence: None)
  Receive Date: 20130219
  Receipt Date: 20130219
  Transmission Date: 20140127
  Serious: Yes (Hospitalization)
  Sender: FDA-Public Use
  Company Number: 7193065

PATIENT
  Age: 87 Year
  Sex: Male

DRUGS (6)
  1. LEVOTHYROXINE (LEVOTHYROXINE) [Suspect]
     Indication: HYPOTHYROIDISM
     Route: 048
  2. AMLODIPINE (AMLODIPINE) [Concomitant]
  3. TAMSULOSIN (TAMSULOSIN) [Concomitant]
  4. IBUPROFEN (IBUPROFEN) [Concomitant]
  5. DIPHENHYDRAMINE (DIPHENHYDRAMINE) [Concomitant]
  6. KAVA (PIPER METHYSTICUM RHIZOME) [Concomitant]

REACTIONS (2)
  - Hepatic encephalopathy [None]
  - Urinary tract infection [None]
